FAERS Safety Report 9370326 (Version 1)
Quarter: 2013Q2

REPORT INFORMATION
  Report Type: Spontaneous
  Country: FR (occurrence: FR)
  Receive Date: 20130626
  Receipt Date: 20130626
  Transmission Date: 20140414
  Serious: Yes (Hospitalization, Other)
  Sender: FDA-Public Use
  Company Number: FR-BRISTOL-MYERS SQUIBB COMPANY-19025600

PATIENT
  Age: 59 Year
  Sex: Female

DRUGS (5)
  1. YERVOY [Suspect]
     Indication: MALIGNANT MELANOMA
     Dosage: 4 COURSE
     Route: 042
     Dates: start: 201211, end: 201302
  2. EPREX [Suspect]
     Route: 058
  3. DOLIPRANE [Concomitant]
     Indication: PAIN
  4. CORTANCYL [Concomitant]
  5. LEXOMIL [Concomitant]
     Dosage: TABS

REACTIONS (4)
  - Posterior reversible encephalopathy syndrome [Recovered/Resolved]
  - Hypertension [Unknown]
  - Metastasis [Unknown]
  - Hypergammaglobulinaemia benign monoclonal [Unknown]
